FAERS Safety Report 10335983 (Version 1)
Quarter: 2014Q3

REPORT INFORMATION
  Report Type: Spontaneous
  Country: US (occurrence: US)
  Receive Date: 20140723
  Receipt Date: 20140723
  Transmission Date: 20150326
  Serious: Yes (Hospitalization)
  Sender: FDA-Public Use
  Company Number: US-BRISTOL-MYERS SQUIBB COMPANY-19426782

PATIENT
  Age: 58 Year
  Sex: Female
  Weight: 98.18 kg

DRUGS (4)
  1. LETAIRIS [Concomitant]
     Active Substance: AMBRISENTAN
  2. COUMADIN [Suspect]
     Active Substance: WARFARIN SODIUM
     Dosage: NDA-21-272
  3. REVATIO [Concomitant]
     Active Substance: SILDENAFIL CITRATE
  4. TREPROSTINIL [Concomitant]
     Active Substance: TREPROSTINIL
     Indication: LUNG DISORDER
     Dosage: 1DF: 28.8 UG/KG
     Route: 041

REACTIONS (3)
  - Asthenia [Unknown]
  - Toxicity to various agents [Unknown]
  - Dyspnoea [Unknown]

NARRATIVE: CASE EVENT DATE: 20130826
